FAERS Safety Report 25082870 (Version 2)
Quarter: 2025Q1

REPORT INFORMATION
  Report Type: Report from Study
  Country: BE (occurrence: BE)
  Receive Date: 20250317
  Receipt Date: 20250328
  Transmission Date: 20250408
  Serious: Yes (Life-Threatening, Hospitalization)
  Sender: TEVA
  Company Number: BE-TEVA-VS-3309640

PATIENT
  Age: 7 Month
  Sex: Male

DRUGS (5)
  1. METHOTREXATE [Suspect]
     Active Substance: METHOTREXATE
     Indication: Infantile fibromatosis
     Route: 042
  2. VINBLASTINE [Concomitant]
     Active Substance: VINBLASTINE
     Indication: Infantile fibromatosis
     Route: 042
  3. DASATINIB [Suspect]
     Active Substance: DASATINIB
     Indication: Infantile fibromatosis
     Route: 048
  4. DASATINIB [Suspect]
     Active Substance: DASATINIB
     Indication: Infantile fibromatosis
     Route: 048
  5. DASATINIB [Suspect]
     Active Substance: DASATINIB
     Indication: Infantile fibromatosis
     Route: 048

REACTIONS (1)
  - Pulmonary hypertension [Recovered/Resolved]
